FAERS Safety Report 10429773 (Version 1)
Quarter: 2014Q3

REPORT INFORMATION
  Report Type: Spontaneous
  Country: US (occurrence: None)
  Receive Date: 20140902
  Receipt Date: 20140902
  Transmission Date: 20150326
  Serious: Yes (Other)
  Sender: FDA-Public Use
  Company Number: None

PATIENT
  Age: 65 Year
  Sex: Male

DRUGS (3)
  1. SOVALDI [Concomitant]
     Active Substance: SOFOSBUVIR
  2. PEGASYS [Suspect]
     Active Substance: PEGINTERFERON ALFA-2A
     Indication: HEPATITIS C
     Dates: start: 20140801, end: 20140804
  3. RIBAVIRIN. [Suspect]
     Active Substance: RIBAVIRIN
     Dosage: 400 MG AND 600 ?Q AM , Q PM?PO
     Route: 048
     Dates: start: 20140801, end: 20140804

REACTIONS (3)
  - Arthralgia [None]
  - Depression [None]
  - Self-injurious ideation [None]

NARRATIVE: CASE EVENT DATE: 20140804
